FAERS Safety Report 6441997-8 (Version None)
Quarter: 2009Q4

REPORT INFORMATION
  Report Type: 
  Country: None (occurrence: None)
  Receive Date: 20091116
  Receipt Date: 20091105
  Transmission Date: 20100525
  Serious: Yes (Other)
  Sender: FDA-Public Use
  Company Number: US-JNJFOC-20091102338

PATIENT
  Age: 40 Year
  Sex: Female
  Weight: 63.5 kg

DRUGS (5)
  1. EXTRA STRENGTH TYLENOL [Suspect]
     Route: 048
  2. EXTRA STRENGTH TYLENOL [Suspect]
     Indication: EAR INFECTION
     Dosage: 1000 MG EVERY 4-6 HOURS (4 TIMES A DAY)
     Route: 048
  3. PHENOBARBITAL [Interacting]
     Indication: CONVULSION PROPHYLAXIS
  4. THYROID TAB [Interacting]
     Indication: HYPOTHYROIDISM
  5. ANTIBIOTIC [Interacting]
     Indication: EAR INFECTION

REACTIONS (2)
  - CONVULSION [None]
  - DRUG INTERACTION [None]
